FAERS Safety Report 13903399 (Version 1)
Quarter: 2017Q3

REPORT INFORMATION
  Report Type: Spontaneous
  Country: US (occurrence: US)
  Receive Date: 20170824
  Receipt Date: 20170824
  Transmission Date: 20171127
  Serious: No
  Sender: FDA-Public Use
  Company Number: US-PFIZER INC-2017364386

PATIENT

DRUGS (3)
  1. CELEBREX [Interacting]
     Active Substance: CELECOXIB
     Dosage: UNK
  2. XELJANZ [Suspect]
     Active Substance: TOFACITINIB CITRATE
     Dosage: 5 MG, 2X/DAY (MORNING AND EVENING)
  3. PREDNISONE. [Interacting]
     Active Substance: PREDNISONE
     Dosage: UNK

REACTIONS (4)
  - Drug interaction [Unknown]
  - Frequent bowel movements [Unknown]
  - Abdominal pain [Unknown]
  - Nausea [Unknown]
